FAERS Safety Report 5736283-5 (Version None)
Quarter: 2008Q2

REPORT INFORMATION
  Report Type: 
  Country: None (occurrence: None)
  Receive Date: 20080509
  Receipt Date: 20080509
  Transmission Date: 20081010
  Serious: Yes (Other)
  Sender: FDA-Public Use
  Company Number: None

PATIENT
  Sex: Female
  Weight: 97.5234 kg

DRUGS (1)
  1. CHEST PROHEALTH MOUTHWASH  UNKNOWN - NO ALCOHOL  PROCTOR GAMBLE [Suspect]
     Indication: DENTAL CARE
     Dosage: 4 TBLSPNS  2X DAY  DENTAL
     Route: 004
     Dates: start: 20080401, end: 20080508

REACTIONS (1)
  - TOOTH DISCOLOURATION [None]
